FAERS Safety Report 5160758-3 (Version None)
Quarter: 2006Q4

REPORT INFORMATION
  Report Type: 
  Country: None (occurrence: None)
  Receive Date: 20060919
  Receipt Date: 20060614
  Transmission Date: 20070319
  Serious: No
  Sender: FDA-Public Use
  Company Number: 2006US001273

PATIENT
  Age: 61 Year
  Sex: Female

DRUGS (4)
  1. VESICARE [Suspect]
     Indication: HYPERTONIC BLADDER
     Dosage: 5 MG UID/QD ORAL
     Route: 048
     Dates: start: 20060501
  2. IRON (IRON ) [Concomitant]
  3. VITAMINS [Concomitant]
  4. OMEGA OILS (CARBINOXAMINE MALEATE) [Concomitant]

REACTIONS (8)
  - ANHIDROSIS [None]
  - DIZZINESS [None]
  - DRY EYE [None]
  - FATIGUE [None]
  - HERPES SIMPLEX [None]
  - MOUTH ULCERATION [None]
  - SOMNOLENCE [None]
  - TONGUE DISORDER [None]
